FAERS Safety Report 5696673-6 (Version None)
Quarter: 2008Q2

REPORT INFORMATION
  Report Type: 
  Country: None (occurrence: None)
  Receive Date: 20080408
  Receipt Date: 20060918
  Transmission Date: 20081010
  Serious: Yes (Other)
  Sender: FDA-Public Use
  Company Number: US-BAYER-US-2006-027360

PATIENT
  Age: 33 Year
  Sex: Female
  Weight: 85 kg

DRUGS (2)
  1. YASMIN [Suspect]
     Indication: ORAL CONTRACEPTION
     Dates: start: 20060101
  2. ZYRTEC [Concomitant]

REACTIONS (1)
  - NEPHROLITHIASIS [None]
